FAERS Safety Report 5917256-6 (Version None)
Quarter: 2008Q4

REPORT INFORMATION
  Report Type: 
  Country: None (occurrence: None)
  Receive Date: 20081009
  Receipt Date: 20081009
  Transmission Date: 20090506
  Serious: Yes (Hospitalization)
  Sender: FDA-Public Use
  Company Number: None

PATIENT
  Age: 68 Year
  Sex: Female
  Weight: 90.1 kg

DRUGS (1)
  1. INTERFERON GAMMA-1B [Suspect]
     Indication: PULMONARY THROMBOSIS
     Dosage: 4,000,000 UNITS QWEEK SQ
     Route: 058
     Dates: start: 20010522, end: 20080831

REACTIONS (1)
  - PANCREATITIS [None]
